FAERS Safety Report 9657189 (Version 2)
Quarter: 2013Q4

REPORT INFORMATION
  Report Type: Spontaneous
  Country: US (occurrence: US)
  Receive Date: 20131030
  Receipt Date: 20131112
  Transmission Date: 20140711
  Serious: No
  Sender: FDA-Public Use
  Company Number: US-PFIZER INC-2013307535

PATIENT
  Sex: Male

DRUGS (3)
  1. CALAN SR [Suspect]
     Dosage: 90 UNK, UNK
     Dates: start: 1991
  2. CALAN SR [Suspect]
     Dosage: 120 UNK, 1X/DAY
  3. CALAN SR [Suspect]
     Dosage: 180 UNK, UNK

REACTIONS (1)
  - Hearing impaired [Unknown]
